FAERS Safety Report 6561890-X (Version None)
Quarter: 2010Q1

REPORT INFORMATION
  Report Type: 
  Country: None (occurrence: None)
  Receive Date: 20100130
  Receipt Date: 20091030
  Transmission Date: 20100710
  Serious: No
  Sender: FDA-Public Use
  Company Number: US-ABBOTT-09P-163-0606467-00

PATIENT
  Sex: Female
  Weight: 95.34 kg

DRUGS (3)
  1. HUMIRA [Suspect]
     Indication: RHEUMATOID ARTHRITIS
     Dates: start: 20090201
  2. VICODIN [Concomitant]
     Indication: PAIN
     Dosage: 5MG/500MG
  3. VICODIN [Concomitant]
     Indication: SLEEP DISORDER

REACTIONS (4)
  - ARTHRALGIA [None]
  - CHILLS [None]
  - COUGH [None]
  - FEELING HOT [None]
